FAERS Safety Report 6488093-1 (Version None)
Quarter: 2009Q4

REPORT INFORMATION
  Report Type: 
  Country: None (occurrence: None)
  Receive Date: 20091210
  Receipt Date: 20091130
  Transmission Date: 20100525
  Serious: Yes (Hospitalization)
  Sender: FDA-Public Use
  Company Number: JP-EISAI INC.-E3810-03349-SPO-JP

PATIENT
  Sex: Female

DRUGS (10)
  1. PARIET (RABEPRAZOLE) [Suspect]
     Indication: REFLUX OESOPHAGITIS
     Route: 048
     Dates: start: 20081004, end: 20090805
  2. NORVASC [Concomitant]
     Indication: HYPERTENSION
     Route: 048
     Dates: start: 20000101, end: 20090508
  3. NU-LOTAN [Concomitant]
     Indication: HYPERTENSION
     Route: 048
     Dates: start: 20080906, end: 20090101
  4. ALFAROL [Concomitant]
     Indication: HYPOCALCAEMIA
     Route: 048
     Dates: start: 20090319
  5. ALFAROL [Concomitant]
     Route: 048
     Dates: start: 20081120, end: 20090318
  6. ARGAMATE [Concomitant]
     Indication: HYPERKALAEMIA
     Route: 048
     Dates: start: 20090508
  7. ARGAMATE [Concomitant]
     Route: 048
     Dates: start: 20090318, end: 20090507
  8. CALTAN [Concomitant]
     Indication: HYPERPHOSPHATAEMIA
     Route: 048
     Dates: start: 20090318
  9. ESPOETIN ALFA GENETICAL COMBINATION [Concomitant]
     Indication: NEPHROGENIC ANAEMIA
     Route: 058
     Dates: start: 20080523
  10. FERROUS FUMARATE [Concomitant]
     Indication: IRON DEFICIENCY
     Route: 048
     Dates: start: 20090107, end: 20090915

REACTIONS (1)
  - ANAEMIA [None]
